FAERS Safety Report 9248512 (Version 1)
Quarter: 2013Q1

REPORT INFORMATION
  Report Type: Spontaneous
  Country: US (occurrence: None)
  Receive Date: 20130305
  Receipt Date: 20130305
  Transmission Date: 20140127
  Serious: Yes (Other)
  Sender: FDA-Public Use
  Company Number: 163-21880-12092711

PATIENT
  Age: 62 Year
  Sex: Male
  Weight: 78.25 kg

DRUGS (16)
  1. REVLIMID (LENALIDOMIDE0 (25 MILIGRAM, CAPSULES) [Suspect]
     Indication: PLASMA CELL MYELOMA
     Dosage: 25MG, 1 IN 1 D, PO
     Route: 048
     Dates: start: 20120821
  2. AREDIA (PAMIDRONATE DISODIUM) [Concomitant]
  3. AMLODIPINE (AMLODIPINE) (TABLETS) [Concomitant]
  4. ASPIRIN (ACETYLSALICYLIC ACID) (TABLETS) [Concomitant]
  5. CALCIUM 600 PLUS D3 (CALCIUM DE ^STADA^ (CAPSULES) [Concomitant]
  6. CRESTOR (ROSUVASTATIN) (TABLETS) [Concomitant]
  7. DEXAMETHASONE (DEXAMETHASONE) [Concomitant]
  8. FLOMAX (TAMSULOSIN HYDROCHLORIDE) (CAPSULES) [Concomitant]
  9. HYDROCHLOROTHIAZIDE (HYDROCHLOROTHIAZIDE) (TABLETS) [Concomitant]
  10. METOPROLOL SUCCINATE (METOPROLOL SUCCINATE) (TABLETS) [Concomitant]
  11. NEXIUM (ESOMEPRAZOLE) (CAPSULES) [Concomitant]
  12. NIACIN (NICOTINIC ACID) (TABLETS) [Concomitant]
  13. OMEGA 3 (FISH OIL) (CAPSULES) [Concomitant]
  14. POTASSIUM CHLORIDE (POTASSIUM CHLORIDE) (TABLETS) [Concomitant]
  15. PROVENTIL (SALBUTAMOL SULFATE) (TABLETS) [Concomitant]
  16. VITAMIN D3 (COLECALCIFEROL) (TABLETS) [Concomitant]

REACTIONS (1)
  - Deep vein thrombosis [None]
